FAERS Safety Report 9995476 (Version 2)
Quarter: 2014Q1

REPORT INFORMATION
  Report Type: Spontaneous
  Country: FR (occurrence: FR)
  Receive Date: 20140311
  Receipt Date: 20140321
  Transmission Date: 20141002
  Serious: Yes (Other)
  Sender: FDA-Public Use
  Company Number: FR-VERTEX PHARMACEUTICALS INC-2014-001201

PATIENT
  Age: 47 Year
  Sex: Male
  Weight: 71 kg

DRUGS (6)
  1. INCIVO [Suspect]
     Indication: HEPATITIS C
     Dosage: UNK, BID
     Route: 048
     Dates: start: 20131115, end: 20140204
  2. PEGASYS [Concomitant]
     Indication: HEPATITIS C
     Dosage: UNK
     Dates: start: 20131008
  3. COPEGUS [Concomitant]
     Indication: HEPATITIS C
     Dates: start: 20131008
  4. AERIUS [Concomitant]
     Indication: PRURITUS
     Route: 048
  5. DERMOVAL [Concomitant]
     Route: 061
     Dates: start: 20140128
  6. BETNEVAL [Concomitant]
     Dosage: TO THE FACE
     Route: 061
     Dates: start: 20140128

REACTIONS (1)
  - Rash [Recovered/Resolved]
